FAERS Safety Report 8759433 (Version 2)
Quarter: 2013Q2

REPORT INFORMATION
  Report Type: Spontaneous
  Country: US (occurrence: US)
  Receive Date: 20120829
  Receipt Date: 20130410
  Transmission Date: 20140414
  Serious: No
  Sender: FDA-Public Use
  Company Number: US-009507513-1208USA001027

PATIENT
  Age: 77 Year
  Sex: Female

DRUGS (2)
  1. MIRALAX [Suspect]
     Indication: PRODUCT USED FOR UNKNOWN INDICATION
     Dosage: UNK, FIVES TIMES A DAY
     Route: 048
     Dates: start: 20120718
  2. MIRALAX [Suspect]
     Dosage: UNK, BID
     Route: 048
     Dates: start: 20120719

REACTIONS (2)
  - Drug ineffective [Unknown]
  - Overdose [Unknown]
